FAERS Safety Report 20198846 (Version 1)
Quarter: 2021Q4

REPORT INFORMATION
  Report Type: Spontaneous
  Country: GB (occurrence: None)
  Receive Date: 20211217
  Receipt Date: 20211217
  Transmission Date: 20220303
  Serious: Yes (Hospitalization, Other)
  Sender: FDA-Public Use
  Company Number: None

PATIENT
  Age: 69 Year
  Sex: Female

DRUGS (1)
  1. CIPROFLOXACIN [Suspect]
     Active Substance: CIPROFLOXACIN
     Indication: Urinary tract infection
     Dosage: UNKNOWN
     Route: 065

REACTIONS (5)
  - Epilepsy [Recovered/Resolved]
  - Urinary incontinence [Unknown]
  - Anal incontinence [Unknown]
  - Musculoskeletal stiffness [Unknown]
  - Tremor [Unknown]
